FAERS Safety Report 17588202 (Version 3)
Quarter: 2020Q1

REPORT INFORMATION
  Report Type: Spontaneous
  Country: None (occurrence: US)
  Receive Date: 20200326
  Receipt Date: 20200331
  Transmission Date: 20200409
  Serious: No
  Sender: FDA-Public Use
  Company Number: US-AKRON, INC.-2082036

PATIENT
  Age: 60 Year
  Sex: Male

DRUGS (1)
  1. FENTANYL CITRATE INJECTION [Suspect]
     Active Substance: FENTANYL CITRATE

REACTIONS (1)
  - Ileus [None]
